FAERS Safety Report 5442081-2 (Version None)
Quarter: 2007Q3

REPORT INFORMATION
  Report Type: 
  Country: None (occurrence: None)
  Receive Date: 20070829
  Receipt Date: 20070820
  Transmission Date: 20080115
  Serious: Yes (Other)
  Sender: FDA-Public Use
  Company Number: DSU-2007-00428

PATIENT
  Age: 72 Year
  Sex: Male
  Weight: 77.1115 kg

DRUGS (8)
  1. EVOXAC [Suspect]
     Indication: SJOGREN'S SYNDROME
     Dosage: PER ORAL
     Route: 048
     Dates: start: 20070705, end: 20070705
  2. TAMBOCOR (FLECAINIDE ACETATE) (150) (FLECAINIDE ACETATE) [Concomitant]
  3. BENICAR HCT [Concomitant]
  4. COUMADIN (WARFARIN SODIUM) (7.5 MILLIGRAM) (WARFARIN SODIUM) [Concomitant]
  5. AVODART (DUTASTERIDE) (0.5) (DUTASTERIDE) [Concomitant]
  6. CRESTOR (ROSUVASTATIN) (10 MILLIGRAM) (ROSUVASTATIN) [Concomitant]
  7. NEXIUM (ESOMEPRAZOLE MAGNESIUM) (40 MILLIGRAM) (ESOMEPRAZOLE MAGNESIUM [Concomitant]
  8. ISOPTIN SR (VERAPAMIL HYDROCHLORIDE) (120 MILLIGRAM) (VERAPAMIL HYDROC [Concomitant]

REACTIONS (1)
  - ATRIAL FIBRILLATION [None]
